FAERS Safety Report 24106605 (Version 2)
Quarter: 2024Q3

REPORT INFORMATION
  Report Type: Spontaneous
  Country: US (occurrence: US)
  Receive Date: 20240717
  Receipt Date: 20240802
  Transmission Date: 20241017
  Serious: Yes (Hospitalization, Other)
  Sender: CALLIDITAS THERAPEUTICS
  Company Number: US-Calliditas-2024CAL01293

PATIENT
  Age: 74 Year
  Sex: Male
  Weight: 67.7 kg

DRUGS (1)
  1. TARPEYO [Suspect]
     Active Substance: BUDESONIDE
     Indication: IgA nephropathy
     Route: 048
     Dates: start: 20240318

REACTIONS (10)
  - Myocardial infarction [Unknown]
  - Peripheral swelling [Unknown]
  - Swelling face [Unknown]
  - Peripheral swelling [Unknown]
  - Depressed mood [Unknown]
  - Palpitations [Unknown]
  - Tremor [Unknown]
  - Arrhythmia [Unknown]
  - Inappropriate schedule of product administration [Unknown]
  - Asthenia [Unknown]
